FAERS Safety Report 5471051-3 (Version None)
Quarter: 2007Q3

REPORT INFORMATION
  Report Type: 
  Country: None (occurrence: None)
  Receive Date: 20070928
  Receipt Date: 20060823
  Transmission Date: 20080115
  Serious: No
  Sender: FDA-Public Use
  Company Number: A0617810A

PATIENT
  Age: 7 Year
  Sex: Male

DRUGS (3)
  1. LAMICTAL [Suspect]
     Indication: EPILEPSY
     Dosage: 50MG TWICE PER DAY
     Route: 048
     Dates: start: 20050901
  2. ADDERALL 20 [Concomitant]
  3. VITAMIN CAP [Concomitant]

REACTIONS (1)
  - MUSCULAR WEAKNESS [None]
